FAERS Safety Report 6826550-6 (Version None)
Quarter: 2010Q3

REPORT INFORMATION
  Report Type: 
  Country: None (occurrence: None)
  Receive Date: 20100709
  Receipt Date: 20100630
  Transmission Date: 20110219
  Serious: Yes (Other)
  Sender: FDA-Public Use
  Company Number: DE-AMGEN-QUU421943

PATIENT
  Sex: Female

DRUGS (4)
  1. NEULASTA [Suspect]
     Indication: CHEMOTHERAPY
     Route: 058
     Dates: start: 20100617, end: 20100617
  2. UNSPECIFIED ANTINEOPLASTIC AGENT [Concomitant]
  3. ZOFRAN [Concomitant]
     Route: 048
     Dates: start: 20100616, end: 20100619
  4. FORTECORTIN [Concomitant]
     Route: 048
     Dates: start: 20100616, end: 20100619

REACTIONS (2)
  - LEUKOPENIA [None]
  - NEUTROPENIA [None]
